FAERS Safety Report 8514207-5 (Version None)
Quarter: 2012Q3

REPORT INFORMATION
  Report Type: 
  Country: None (occurrence: None)
  Receive Date: 20120717
  Receipt Date: 20120711
  Transmission Date: 20120928
  Serious: Yes (Other)
  Sender: FDA-Public Use
  Company Number: US-PFIZER INC-2012168141

PATIENT
  Sex: Female
  Weight: 82.54 kg

DRUGS (9)
  1. ALEVE [Suspect]
     Indication: HEADACHE
     Dosage: UNK
  2. ELAVIL [Suspect]
     Indication: DIABETIC NEUROPATHY
     Dosage: UNK
  3. NEURONTIN [Suspect]
     Indication: DIABETIC NEUROPATHY
     Dosage: UNK
  4. HUMALOG [Suspect]
     Indication: DIABETES MELLITUS
     Dosage: 60UNITS IN THE MORNING AND 40UNITS IN THE EVENING
  5. METFORMIN [Concomitant]
     Dosage: 1000 MG, 2X/DAY
  6. METFORMIN [Concomitant]
     Indication: DIABETES MELLITUS
     Dosage: UNK
  7. CELEBREX [Concomitant]
     Indication: ARTHRITIS
     Dosage: 200 MG, DAILY
  8. SIMVASTATIN [Concomitant]
     Indication: BLOOD CHOLESTEROL ABNORMAL
     Dosage: 5 MG, DAILY
  9. ACTOS [Concomitant]
     Indication: DIABETES MELLITUS
     Dosage: UNK

REACTIONS (6)
  - FEELING ABNORMAL [None]
  - NAUSEA [None]
  - DISTURBANCE IN ATTENTION [None]
  - THINKING ABNORMAL [None]
  - ULCER [None]
  - DRUG INEFFECTIVE [None]
